FAERS Safety Report 14117257 (Version 3)
Quarter: 2018Q2

REPORT INFORMATION
  Report Type: Spontaneous
  Country: IT (occurrence: IT)
  Receive Date: 20171023
  Receipt Date: 20180423
  Transmission Date: 20180711
  Serious: Yes (Other)
  Sender: FDA-Public Use
  Company Number: IT-TEVA-817190ACC

PATIENT
  Sex: Male

DRUGS (4)
  1. REBETOL [Suspect]
     Active Substance: RIBAVIRIN
     Indication: CHRONIC HEPATITIS C
     Dosage: 1200 MILLIGRAM DAILY;
     Route: 048
     Dates: start: 20161228, end: 20170613
  2. RIBAVIRINA TEVA - 200 MG CAPSULE RIGIDE - TEVA B.V. [Suspect]
     Active Substance: RIBAVIRIN
     Indication: CHRONIC HEPATITIS C
     Route: 048
     Dates: start: 20161228, end: 20170613
  3. DAKLINZA [Suspect]
     Active Substance: DACLATASVIR
     Indication: CHRONIC HEPATITIS C
     Route: 048
     Dates: start: 20161228, end: 20170613
  4. SOVALDI [Suspect]
     Active Substance: SOFOSBUVIR
     Indication: CHRONIC HEPATITIS C
     Route: 048
     Dates: start: 20161228, end: 20170613

REACTIONS (13)
  - Pulmonary mass [None]
  - Hepatocellular carcinoma [Unknown]
  - Cholestasis [None]
  - Osteochondrosis [None]
  - Pleural effusion [None]
  - Cholelithiasis [None]
  - Atelectasis [None]
  - Aortic arteriosclerosis [None]
  - Arteriosclerosis coronary artery [None]
  - Arteriosclerosis [None]
  - Hepatic lesion [None]
  - Metastases to lung [None]
  - Hepatic necrosis [None]
